FAERS Safety Report 4828110-5 (Version None)
Quarter: 2005Q4

REPORT INFORMATION
  Report Type: 
  Country: None (occurrence: None)
  Receive Date: 20051110
  Receipt Date: 20051031
  Transmission Date: 20060501
  Serious: Yes (Life-Threatening, Other)
  Sender: FDA-Public Use
  Company Number: 2005144445

PATIENT
  Age: 62 Year
  Sex: Female

DRUGS (2)
  1. FRAGMIN [Suspect]
     Indication: HAEMODIALYSIS
     Dosage: 1300 I.U. (1300 I.U., 1 IN 1 D)
  2. ALL OTHER NON-THERAPEUTIC PRODUCTS (ALL OTHER NON-THERAPEUTIC PRODUCTS [Suspect]
     Indication: ILL-DEFINED DISORDER

REACTIONS (2)
  - ANAPHYLACTIC SHOCK [None]
  - HAEMODIALYSIS-INDUCED SYMPTOM [None]
